FAERS Safety Report 6119403-2 (Version None)
Quarter: 2009Q1

REPORT INFORMATION
  Report Type: 
  Country: None (occurrence: None)
  Receive Date: 20090316
  Receipt Date: 20090306
  Transmission Date: 20090719
  Serious: Yes (Hospitalization)
  Sender: FDA-Public Use
  Company Number: A0772824A

PATIENT
  Age: 73 Year
  Sex: Female
  Weight: 86.4 kg

DRUGS (5)
  1. AVANDIA [Suspect]
     Indication: DIABETES MELLITUS
     Dosage: 4MG PER DAY
     Route: 048
     Dates: start: 20040101, end: 20070412
  2. CELEBREX [Concomitant]
  3. METOPROLOL TARTRATE [Concomitant]
  4. LEVOTHYROXINE [Concomitant]
  5. QUINAPRIL [Concomitant]

REACTIONS (2)
  - CARDIAC DISORDER [None]
  - CARDIAC FAILURE CONGESTIVE [None]
